FAERS Safety Report 8904243 (Version 6)
Quarter: 2015Q3

REPORT INFORMATION
  Report Type: Report from Study
  Country: TW (occurrence: TW)
  Receive Date: 20121113
  Receipt Date: 20150728
  Transmission Date: 20151125
  Serious: Yes (Hospitalization)
  Sender: FDA-Public Use
  Company Number: PHHY2012TW090748

PATIENT
  Age: 58 Year
  Sex: Male
  Weight: 65.6 kg

DRUGS (9)
  1. MELPHALAN [Concomitant]
     Active Substance: MELPHALAN
     Indication: PLASMA CELL MYELOMA
     Dosage: 200 MG, PER IVF
     Route: 065
     Dates: start: 20130225
  2. ZOLEDRONATE [Suspect]
     Active Substance: ZOLEDRONIC ACID
     Indication: METASTASES TO BONE
     Dosage: 4 MG, UNK
     Route: 042
     Dates: start: 20121005
  3. BORTEZOMIB [Concomitant]
     Active Substance: BORTEZOMIB
     Indication: PLASMA CELL MYELOMA
     Dosage: 2.3 MG, UNK
     Route: 065
     Dates: start: 201210, end: 20130115
  4. DEXAMETHASONE. [Concomitant]
     Active Substance: DEXAMETHASONE
     Indication: BLOOD DISORDER
     Dosage: 8 MG, UNK
     Route: 065
     Dates: start: 20120928, end: 20130116
  5. VELCADE [Concomitant]
     Active Substance: BORTEZOMIB
     Indication: PRODUCT USED FOR UNKNOWN INDICATION
     Route: 065
  6. ULTRACET [Concomitant]
     Active Substance: ACETAMINOPHEN\TRAMADOL HYDROCHLORIDE
     Indication: BONE PAIN
     Dosage: 362.5 MG, UNK
     Route: 048
     Dates: start: 20121008, end: 20121010
  7. THALIDOMIDE [Concomitant]
     Active Substance: THALIDOMIDE
     Indication: PLASMA CELL MYELOMA
     Dosage: 100 MG, UNK
     Route: 065
     Dates: start: 20121002, end: 20121021
  8. THALIDOMIDE [Concomitant]
     Active Substance: THALIDOMIDE
     Dosage: 100 MG, UNK
     Route: 065
     Dates: start: 20130108, end: 20130121
  9. THALIDOMIDE [Concomitant]
     Active Substance: THALIDOMIDE
     Dosage: 100 MG, UNK
     Route: 065
     Dates: start: 20130416, end: 201306

REACTIONS (8)
  - Sepsis [Recovered/Resolved]
  - Wound infection staphylococcal [Not Recovered/Not Resolved]
  - Infected fistula [Recovering/Resolving]
  - Skin ulcer [Recovering/Resolving]
  - Osteomyelitis chronic [Not Recovered/Not Resolved]
  - Herpes simplex [Not Recovered/Not Resolved]
  - Urinary tract infection [Recovered/Resolved]
  - Pyrexia [Recovered/Resolved]

NARRATIVE: CASE EVENT DATE: 20121009
